FAERS Safety Report 10440696 (Version 1)
Quarter: 2014Q3

REPORT INFORMATION
  Report Type: Spontaneous
  Country: US (occurrence: None)
  Receive Date: 20140908
  Receipt Date: 20140908
  Transmission Date: 20150326
  Serious: Yes (Hospitalization)
  Sender: FDA-Public Use
  Company Number: None

PATIENT
  Age: 79 Year
  Sex: Male
  Weight: 87 kg

DRUGS (13)
  1. CALCITONIN NASAL SPRAY [Concomitant]
  2. HUMALOG [Concomitant]
     Active Substance: INSULIN LISPRO
  3. VITAMIN D3 [Concomitant]
     Active Substance: CHOLECALCIFEROL
  4. DOCUSATE [Concomitant]
     Active Substance: DOCUSATE
  5. ALPRAZOLAM. [Concomitant]
     Active Substance: ALPRAZOLAM
  6. LEVOTHYROXINE [Concomitant]
     Active Substance: LEVOTHYROXINE
  7. XARELTO [Suspect]
     Active Substance: RIVAROXABAN
     Indication: THROMBOSIS PROPHYLAXIS
     Dosage: 15 MG(1 PIL) QD ORAL
     Route: 048
     Dates: start: 20130601, end: 20140904
  8. ATORVASTATIN [Concomitant]
     Active Substance: ATORVASTATIN
  9. FAMOTIDINE. [Concomitant]
     Active Substance: FAMOTIDINE
  10. FUROSEMIDE. [Concomitant]
     Active Substance: FUROSEMIDE
  11. MILK OF MANGESIA [Concomitant]
  12. AMIODARONE [Concomitant]
     Active Substance: AMIODARONE
  13. AMLODIPINE [Concomitant]
     Active Substance: AMLODIPINE BESYLATE

REACTIONS (8)
  - Limb injury [None]
  - Compartment syndrome [None]
  - Haemoglobin decreased [None]
  - Soft tissue haemorrhage [None]
  - Haematoma [None]
  - Pain in extremity [None]
  - Erythema [None]
  - Oedema peripheral [None]

NARRATIVE: CASE EVENT DATE: 20140903
